FAERS Safety Report 14996226 (Version 2)
Quarter: 2018Q3

REPORT INFORMATION
  Report Type: Spontaneous
  Country: FR (occurrence: FR)
  Receive Date: 20180611
  Receipt Date: 20180709
  Transmission Date: 20181010
  Serious: Yes (Life-Threatening, Hospitalization, Other)
  Sender: FDA-Public Use
  Company Number: FR-SA-2018SA152895

PATIENT
  Age: 49 Year
  Sex: Female

DRUGS (1)
  1. DUPIXENT [Suspect]
     Active Substance: DUPILUMAB
     Indication: DERMATITIS ATOPIC
     Dosage: 300 MG, QOW
     Route: 058
     Dates: start: 20180228, end: 20180518

REACTIONS (2)
  - Cutaneous lymphoma [Not Recovered/Not Resolved]
  - Anaplastic large cell lymphoma T- and null-cell types [Not Recovered/Not Resolved]

NARRATIVE: CASE EVENT DATE: 201805
